FAERS Safety Report 12762597 (Version 1)
Quarter: 2016Q3

REPORT INFORMATION
  Report Type: Spontaneous
  Country: None (occurrence: FR)
  Receive Date: 20160920
  Receipt Date: 20160920
  Transmission Date: 20161109
  Serious: Yes (Life-Threatening)
  Sender: FDA-Public Use
  Company Number: FR-MERCK KGAA-1057478

PATIENT

DRUGS (1)
  1. NOVOTHYROX [Suspect]
     Active Substance: LEVOTHYROXINE SODIUM

REACTIONS (9)
  - Myocarditis [None]
  - Palpitations [None]
  - Feeling cold [None]
  - Stress cardiomyopathy [None]
  - Insomnia [None]
  - Nervousness [None]
  - Muscle spasms [None]
  - Myocardial infarction [None]
  - Fatigue [None]
